FAERS Safety Report 6826363-5 (Version None)
Quarter: 2010Q3

REPORT INFORMATION
  Report Type: 
  Country: None (occurrence: None)
  Receive Date: 20100709
  Receipt Date: 20100630
  Transmission Date: 20110219
  Serious: Yes (Disabling)
  Sender: FDA-Public Use
  Company Number: AU-ASTRAZENECA-2010SE29047

PATIENT
  Age: 12 Year
  Sex: Female

DRUGS (4)
  1. PRILOSEC [Suspect]
     Dosage: 1 DOSE, 10 MG
     Route: 065
  2. PRILOSEC [Suspect]
     Dosage: 40 MGS STAT
     Route: 048
  3. COPAXONE [Concomitant]
     Indication: MULTIPLE SCLEROSIS
     Route: 030
  4. IBUPROFEN TABLETS [Concomitant]
     Indication: PAIN
     Dosage: PRN
     Route: 048

REACTIONS (1)
  - PSYCHOMOTOR HYPERACTIVITY [None]
